FAERS Safety Report 17953085 (Version 2)
Quarter: 2021Q3

REPORT INFORMATION
  Report Type: Other
  Country: US (occurrence: US)
  Receive Date: 20200627
  Receipt Date: 20210713
  Transmission Date: 20211014
  Serious: Yes (Other)
  Sender: FDA-Public Use
  Company Number: US-ROCHE-2630157

PATIENT
  Sex: Female

DRUGS (12)
  1. MAXALT [Concomitant]
     Active Substance: RIZATRIPTAN BENZOATE
  2. VESICARE [Concomitant]
     Active Substance: SOLIFENACIN SUCCINATE
  3. OCREVUS [Suspect]
     Active Substance: OCRELIZUMAB
     Indication: PRIMARY PROGRESSIVE MULTIPLE SCLEROSIS
     Dosage: DATE OF TREATMENT:  06/NOV/2018, 19/NOV/2019?PRESCRIBED WITH 300 MG, EVERY 2 WEEKS THEN 600 MG, EVER
     Route: 042
     Dates: start: 20181023, end: 20200729
  4. LIORESAL [Concomitant]
     Active Substance: BACLOFEN
  5. DELTASONE [Concomitant]
     Active Substance: PREDNISONE
  6. GLUCOPHAGE [Concomitant]
     Active Substance: METFORMIN HYDROCHLORIDE
  7. SYNTHROID [Concomitant]
     Active Substance: LEVOTHYROXINE SODIUM
     Dosage: 75 MCG
  8. LEXAPRO [Concomitant]
     Active Substance: ESCITALOPRAM OXALATE
  9. IMITREX [Concomitant]
     Active Substance: SUMATRIPTAN SUCCINATE
  10. ELAVIL [AMITRIPTYLINE] [Concomitant]
  11. BENTYL [Concomitant]
     Active Substance: DICYCLOMINE HYDROCHLORIDE
  12. PLEGRIDY [Concomitant]
     Active Substance: PEGINTERFERON BETA-1A

REACTIONS (1)
  - Urinary tract infection [Unknown]
